FAERS Safety Report 9053615 (Version 1)
Quarter: 2013Q1

REPORT INFORMATION
  Report Type: Spontaneous
  Country: US (occurrence: None)
  Receive Date: 20130117
  Receipt Date: 20130117
  Transmission Date: 20140127
  Serious: Yes (Hospitalization, Other)
  Sender: FDA-Public Use
  Company Number: ACO_33762_2013

PATIENT
  Age: 49 Year
  Sex: Male

DRUGS (6)
  1. AMPYRA (DALFAMPRIDINE) TABLET, 10MG [Suspect]
     Indication: GAIT DISTURBANCE
     Dosage: UNK
     Dates: start: 2010, end: 201106
  2. COCAINE (COCAINE) (COCAINE) [Suspect]
     Indication: PRODUCT USED FOR UNKNOWN INDICATION
     Dosage: UNK
  3. NATALIZUMAB (NATALIZUMAB) [Concomitant]
  4. MORPHINE SULFATE (MORPHINE SULFATE) [Concomitant]
  5. CANNABIS (CANNABIS) [Concomitant]
  6. TIZANIDINE (TIZANIDINE HYDROCHLORIDE) [Concomitant]

REACTIONS (1)
  - Status epilepticus [None]
